FAERS Safety Report 8380340-4 (Version None)
Quarter: 2012Q2

REPORT INFORMATION
  Report Type: 
  Country: None (occurrence: None)
  Receive Date: 20120522
  Receipt Date: 20110510
  Transmission Date: 20120825
  Serious: Yes (Hospitalization)
  Sender: FDA-Public Use
  Company Number: 2011-02704

PATIENT

DRUGS (1)
  1. THERACYS [Suspect]
     Indication: BLADDER CANCER
     Dosage: NR

REACTIONS (6)
  - PYREXIA [None]
  - DYSPNOEA [None]
  - ARTHRALGIA [None]
  - DISORIENTATION [None]
  - VISUAL IMPAIRMENT [None]
  - HYPERSENSITIVITY [None]
